FAERS Safety Report 4355952-5 (Version None)
Quarter: 2004Q2

REPORT INFORMATION
  Report Type: 
  Country: None (occurrence: None)
  Receive Date: 20040510
  Receipt Date: 20040318
  Transmission Date: 20050107
  Serious: Yes (Other)
  Sender: FDA-Public Use
  Company Number: FLUV00304000979

PATIENT
  Age: 49 Year
  Sex: Female

DRUGS (12)
  1. FLUVOXAMINE MALEATE [Suspect]
     Indication: ANXIETY
     Dosage: 50 MG DAILY PO
     Route: 048
     Dates: start: 20031030, end: 20031104
  2. ARTANE [Concomitant]
  3. ALOSENN () [Concomitant]
  4. EURODIN (ESTAZOLAM) [Concomitant]
  5. FERROMIA (FERROUS CITRATE) [Concomitant]
  6. INDERAL [Concomitant]
  7. PERMAX [Concomitant]
  8. MYONAL (EPERISONE HYDROCHLORIDE) [Concomitant]
  9. SELBEX (TEPRENONE) [Concomitant]
  10. RIZE (CLOTIAZEPAM) [Concomitant]
  11. MENESIT () [Concomitant]
  12. ALPRAZOLAM [Concomitant]

REACTIONS (2)
  - BLOOD CREATINE PHOSPHOKINASE INCREASED [None]
  - MALAISE [None]
